FAERS Safety Report 6917814-6 (Version None)
Quarter: 2010Q3

REPORT INFORMATION
  Report Type: 
  Country: None (occurrence: None)
  Receive Date: 20100806
  Receipt Date: 20100726
  Transmission Date: 20110219
  Serious: Yes (Other)
  Sender: FDA-Public Use
  Company Number: GER/GER/ 10 /0014569

PATIENT
  Age: 79 Year
  Sex: Female

DRUGS (9)
  1. OMEPRAZOLE [Suspect]
     Indication: EXTRANODAL MARGINAL ZONE B-CELL LYMPHOMA (MALT TYPE)
     Dosage: 40 MG, 1 IN 1 D, ORAL
     Route: 048
     Dates: start: 20050101
  2. SIMVASTATIN [Suspect]
     Indication: CORONARY ARTERY DISEASE
     Dosage: 20 MG, 1 IN 1 D, ORAL
     Route: 048
     Dates: start: 20090901
  3. METOPROLOL SUCCINATE [Suspect]
     Indication: CORONARY ARTERY DISEASE
     Dosage: 47.5 MG, 2 IN 1 D, ORAL
     Route: 048
     Dates: start: 20090301
  4. METFORMIN HCL [Concomitant]
  5. GLIMEPIRIDE [Concomitant]
  6. ASPIRIN [Concomitant]
  7. HYDROCHLOROTHAZIDE (HYDROCHLOROTHIAZIDE) [Concomitant]
  8. CORIFEO 20 (LERCANIDIPINE HYDROCHLORIDE) [Concomitant]
  9. RAMIPRIL [Concomitant]

REACTIONS (1)
  - PATHOLOGICAL FRACTURE [None]
